FAERS Safety Report 16822704 (Version 1)
Quarter: 2019Q3

REPORT INFORMATION
  Report Type: Spontaneous
  Country: FR (occurrence: FR)
  Receive Date: 20190918
  Receipt Date: 20190918
  Transmission Date: 20191005
  Serious: Yes (Hospitalization)
  Sender: FDA-Public Use
  Company Number: FR-JNJFOC-20190921773

PATIENT
  Age: 12 Year
  Sex: Female
  Weight: 50 kg

DRUGS (4)
  1. PRIMPERAN [Interacting]
     Active Substance: METOCLOPRAMIDE HYDROCHLORIDE
     Indication: ABDOMINAL PAIN
     Route: 041
     Dates: start: 20190709, end: 20190709
  2. LEXOMIL [Interacting]
     Active Substance: BROMAZEPAM
     Indication: ABDOMINAL PAIN
     Route: 065
     Dates: start: 20190709, end: 20190709
  3. TRAMADOL HYDROCHLORIDE. [Suspect]
     Active Substance: TRAMADOL HYDROCHLORIDE
     Indication: ABDOMINAL PAIN
     Route: 041
     Dates: start: 20190709, end: 20190709
  4. NALBUPHINE RENAUDIN [Interacting]
     Active Substance: NALBUPHINE HYDROCHLORIDE
     Indication: ABDOMINAL PAIN
     Route: 041
     Dates: start: 20190709, end: 20190709

REACTIONS (2)
  - Drug interaction [Unknown]
  - Respiratory distress [Recovered/Resolved]

NARRATIVE: CASE EVENT DATE: 20190709
